FAERS Safety Report 5328376-1 (Version None)
Quarter: 2007Q2

REPORT INFORMATION
  Report Type: 
  Country: None (occurrence: None)
  Receive Date: 20070518
  Receipt Date: 20070509
  Transmission Date: 20071010
  Serious: Yes (Hospitalization, Other)
  Sender: FDA-Public Use
  Company Number: CA-JNJFOC-20060703569

PATIENT
  Sex: Female

DRUGS (7)
  1. REMICADE [Suspect]
     Route: 042
  2. REMICADE [Suspect]
     Dosage: 14 INFUSIONS ON UNKNOWN DATES
     Route: 042
  3. REMICADE [Suspect]
     Indication: CROHN'S DISEASE
     Route: 042
  4. HYDROXYZINE HYDROCHLORIDE [Concomitant]
  5. ACCOLATE [Concomitant]
  6. BENADRYL [Concomitant]
     Indication: PREMEDICATION
     Dosage: 50 MG BEFORE EACH INFUSION
     Route: 042
  7. SOLU-CORTEF [Concomitant]
     Indication: PREMEDICATION
     Dosage: 100 MG BEFORE EACH INFUSION
     Route: 042

REACTIONS (2)
  - GASTROINTESTINAL DISORDER [None]
  - INTESTINAL OPERATION [None]
